FAERS Safety Report 4439734-1 (Version None)
Quarter: 2004Q3

REPORT INFORMATION
  Report Type: 
  Country: None (occurrence: None)
  Receive Date: 20040831
  Receipt Date: 20040824
  Transmission Date: 20050211
  Serious: Yes (Death)
  Sender: FDA-Public Use
  Company Number: 2004AC00230

PATIENT
  Sex: Male

DRUGS (3)
  1. QUETIAPINE [Suspect]
  2. COCAINE [Suspect]
  3. ETHANOL [Concomitant]

REACTIONS (6)
  - BLOOD ETHANOL INCREASED [None]
  - COMPLETED SUICIDE [None]
  - CORONARY ARTERY ATHEROSCLEROSIS [None]
  - OVERDOSE [None]
  - PULMONARY OEDEMA [None]
  - THERAPEUTIC AGENT TOXICITY [None]
